FAERS Safety Report 4981538-5 (Version None)
Quarter: 2006Q2

REPORT INFORMATION
  Report Type: 
  Country: None (occurrence: None)
  Receive Date: 20060424
  Receipt Date: 20050218
  Transmission Date: 20061013
  Serious: Yes (Hospitalization, Other)
  Sender: FDA-Public Use
  Company Number: US-MERCK-0502USA02831

PATIENT
  Age: 54 Year
  Sex: Female
  Weight: 73 kg

DRUGS (23)
  1. VIOXX [Suspect]
     Indication: ARTHRITIS
     Route: 048
     Dates: start: 19990101, end: 20010718
  2. WELLBUTRIN [Concomitant]
     Route: 065
  3. AMITRIPTYLINE HYDROCHLORIDE [Concomitant]
     Route: 065
  4. [THERAPY UNSPECIFIED] [Concomitant]
     Route: 065
  5. PRAVACHOL [Concomitant]
     Route: 065
  6. HYDROCODONE BITARTRATE [Concomitant]
     Route: 065
  7. QUININE [Concomitant]
     Route: 065
  8. ESTRATEST [Concomitant]
     Route: 065
  9. CARDIZEM [Concomitant]
     Route: 065
  10. RANITIDINE [Concomitant]
     Route: 065
  11. ALBUTEROL [Concomitant]
     Route: 065
  12. THEOPHYLLINE [Concomitant]
     Route: 065
  13. METHYLDOPA [Concomitant]
     Route: 065
  14. SEREVENT [Concomitant]
     Route: 065
  15. HYDROXYZINE HYDROCHLORIDE [Concomitant]
     Route: 065
  16. BACTROBAN [Concomitant]
     Route: 065
  17. POTASSIUM (UNSPECIFIED) [Concomitant]
     Route: 065
  18. FUROSEMIDE [Concomitant]
     Route: 065
  19. KETOCONAZOLE [Concomitant]
     Route: 065
  20. ZITHROMAX [Concomitant]
     Route: 065
  21. [THERAPY UNSPECIFIED] [Concomitant]
     Route: 065
  22. PROMETHAZINE [Concomitant]
     Route: 065
  23. ERYTHROMYCIN [Concomitant]
     Route: 065

REACTIONS (23)
  - ABDOMINAL PAIN [None]
  - ANGIOPATHY [None]
  - ARTERIOSCLEROSIS [None]
  - BACK PAIN [None]
  - BLOOD ALKALINE PHOSPHATASE INCREASED [None]
  - CARDIAC DISORDER [None]
  - CAROTID BRUIT [None]
  - CEREBROVASCULAR ACCIDENT [None]
  - CHEST DISCOMFORT [None]
  - CORONARY ARTERY DISEASE [None]
  - FOOD AVERSION [None]
  - GASTROOESOPHAGEAL REFLUX DISEASE [None]
  - HYPERCHOLESTEROLAEMIA [None]
  - HYPERTENSION [None]
  - HYPERTRIGLYCERIDAEMIA [None]
  - INTERMITTENT CLAUDICATION [None]
  - MESENTERIC ARTERY STENOSIS [None]
  - MYOCARDIAL INFARCTION [None]
  - RENAL ARTERY STENOSIS [None]
  - SYNCOPE [None]
  - THROMBOSIS [None]
  - TRANSIENT ISCHAEMIC ATTACK [None]
  - WEIGHT DECREASED [None]
